FAERS Safety Report 10498293 (Version 1)
Quarter: 2014Q4

REPORT INFORMATION
  Report Type: Spontaneous
  Country: US (occurrence: None)
  Receive Date: 20141003
  Receipt Date: 20141003
  Transmission Date: 20150528
  Serious: No
  Sender: FDA-Public Use
  Company Number: None

PATIENT
  Age: 61 Year
  Sex: Male

DRUGS (2)
  1. SOVALDI [Suspect]
     Active Substance: SOFOSBUVIR
     Indication: CHRONIC HEPATITIS
     Dosage: SOVALDI 400MG TAB, DAILY, PO
     Route: 048
     Dates: start: 20140910
  2. RIBAVIRIN. [Suspect]
     Active Substance: RIBAVIRIN
     Indication: CHRONIC HEPATITIS
     Dosage: RIBAVIRIN 200MG TAB, 3 TABS BID, PO
     Route: 048
     Dates: start: 20140910

REACTIONS (5)
  - Skin burning sensation [None]
  - Myalgia [None]
  - Fatigue [None]
  - Headache [None]
  - Insomnia [None]

NARRATIVE: CASE EVENT DATE: 201409
